FAERS Safety Report 9407177 (Version 2)
Quarter: 2013Q3

REPORT INFORMATION
  Report Type: Spontaneous
  Country: US (occurrence: US)
  Receive Date: 20130718
  Receipt Date: 20130909
  Transmission Date: 20140515
  Serious: Yes (Death)
  Sender: FDA-Public Use
  Company Number: US-ELI_LILLY_AND_COMPANY-US201307004303

PATIENT
  Age: 48 Year
  Sex: Male
  Weight: 115.65 kg

DRUGS (3)
  1. INSULIN HUMAN [Suspect]
     Indication: TYPE 1 DIABETES MELLITUS
     Dosage: UNK
     Route: 058
     Dates: start: 2008
  2. ASA [Concomitant]
     Dosage: 81 MG, UNK
  3. DOSTINEX [Concomitant]
     Dosage: .25 DF, 2/W

REACTIONS (2)
  - Diabetic complication [Fatal]
  - Wrong technique in drug usage process [Unknown]
